FAERS Safety Report 9392625 (Version 3)
Quarter: 2013Q3

REPORT INFORMATION
  Report Type: Spontaneous
  Country: SE (occurrence: SE)
  Receive Date: 20130710
  Receipt Date: 20130930
  Transmission Date: 20140515
  Serious: Yes (Death, Other)
  Sender: FDA-Public Use
  Company Number: SE-AMGEN-SWESP2013047661

PATIENT
  Age: 78 Year
  Sex: Male

DRUGS (1)
  1. XGEVA [Suspect]
     Indication: METASTASES TO BONE
     Dosage: 120 MG, Q4WK
     Route: 058
     Dates: start: 20130211, end: 201305

REACTIONS (7)
  - Prostate cancer [Fatal]
  - Cellulitis [Recovering/Resolving]
  - Cardiovascular insufficiency [Unknown]
  - Impaired healing [Unknown]
  - Abdominal distension [Unknown]
  - Local swelling [Unknown]
  - Skin discolouration [Unknown]
